FAERS Safety Report 6639659-7 (Version None)
Quarter: 2010Q1

REPORT INFORMATION
  Report Type: 
  Country: None (occurrence: None)
  Receive Date: 20100315
  Receipt Date: 20100302
  Transmission Date: 20100710
  Serious: Yes (Other)
  Sender: FDA-Public Use
  Company Number: 008290

PATIENT
  Age: 32 Year
  Sex: Female

DRUGS (1)
  1. VIMPAT [Suspect]
     Dosage: 100 MG BID

REACTIONS (1)
  - CONVULSION [None]
